FAERS Safety Report 10585548 (Version 2)
Quarter: 2014Q4

REPORT INFORMATION
  Report Type: Spontaneous
  Country: US (occurrence: US)
  Receive Date: 20141114
  Receipt Date: 20141114
  Transmission Date: 20150529
  Serious: Yes (Death, Hospitalization, Other)
  Sender: FDA-Public Use
  Company Number: US-GLAXOSMITHKLINE-A0867756A

PATIENT
  Age: 89 Year
  Sex: Female

DRUGS (1)
  1. AVANDIA [Suspect]
     Active Substance: ROSIGLITAZONE MALEATE
     Indication: BLOOD GLUCOSE INCREASED
     Dosage: UNK
     Route: 048
     Dates: start: 20090202, end: 20090316

REACTIONS (10)
  - Blood glucose increased [Unknown]
  - Atrial fibrillation [Unknown]
  - Pleural effusion [Unknown]
  - Chronic kidney disease [Fatal]
  - Abdominal hernia [Unknown]
  - Hypertension [Unknown]
  - Cardiac failure congestive [Unknown]
  - Gangrene [Unknown]
  - Coronary artery disease [Unknown]
  - Bradyarrhythmia [Unknown]

NARRATIVE: CASE EVENT DATE: 20090316
